FAERS Safety Report 8987112 (Version 1)
Quarter: 2012Q4

REPORT INFORMATION
  Report Type: 
  Country: US (occurrence: US)
  Receive Date: 20121227
  Receipt Date: 20121227
  Transmission Date: 20130627
  Serious: Yes (Hospitalization)
  Sender: FDA-Public Use
  Company Number: PHEH2012US025142

PATIENT
  Age: 59 Year
  Sex: Female
  Weight: 99.77 kg

DRUGS (21)
  1. AFINITOR [Suspect]
     Indication: PANCREATIC CARCINOMA
     Dosage: UNK
     Dates: end: 20120919
  2. SANDOSTATIN [Suspect]
     Dosage: UNK
  3. SUTENT [Suspect]
     Dosage: 37.5 mg, UNK
     Dates: start: 20120905
  4. LANTUS [Concomitant]
  5. TRIAMTERENE [Concomitant]
  6. CRESTOR [Concomitant]
  7. METOPROLOL [Concomitant]
  8. PANCRELIPASE [Concomitant]
  9. OXYCODONE [Concomitant]
  10. HYDROMORPHONE [Concomitant]
  11. CANNABIS SATIVA SUBSP. INDICA TOP [Concomitant]
     Indication: PAIN
  12. CANNABIS SATIVA SUBSP. INDICA TOP [Concomitant]
     Indication: NAUSEA
  13. CANNABIS SATIVA SUBSP. INDICA TOP [Concomitant]
     Indication: ANXIETY
  14. TRICOR [Concomitant]
  15. OMEPRAZOLE [Concomitant]
  16. GINKGO BILOBA [Concomitant]
  17. MIGRELIEF [Concomitant]
  18. STRESSTABS [Concomitant]
  19. CALCIFEROL [Concomitant]
  20. FISH OIL [Concomitant]
  21. CURCUMIN [Suspect]

REACTIONS (4)
  - Blood triglycerides increased [Unknown]
  - Pain in jaw [Unknown]
  - Dry skin [Unknown]
  - Burning sensation [Unknown]
